FAERS Safety Report 5272450-5 (Version None)
Quarter: 2007Q1

REPORT INFORMATION
  Report Type: 
  Country: None (occurrence: None)
  Receive Date: 20070319
  Receipt Date: 20070307
  Transmission Date: 20070707
  Serious: Yes (Hospitalization)
  Sender: FDA-Public Use
  Company Number: FTD20070001

PATIENT
  Age: 69 Year
  Sex: Female
  Weight: 68.0396 kg

DRUGS (4)
  1. FAMOTIDINE [Suspect]
     Indication: GASTRITIS
     Dosage: 20-40 MG PER DAY PO
     Route: 048
     Dates: start: 20030101, end: 20070301
  2. FAMOTIDINE [Suspect]
     Indication: GASTROOESOPHAGEAL REFLUX DISEASE
     Dosage: 20-40 MG PER DAY PO
     Route: 048
     Dates: start: 20030101, end: 20070301
  3. NORVASC [Concomitant]
  4. ATENOLOL [Concomitant]

REACTIONS (5)
  - ARTHRALGIA [None]
  - CARDIAC FLUTTER [None]
  - GASTROOESOPHAGEAL REFLUX DISEASE [None]
  - LABYRINTHITIS [None]
  - URTICARIA [None]
